FAERS Safety Report 6232596-1 (Version None)
Quarter: 2009Q2

REPORT INFORMATION
  Report Type: 
  Country: None (occurrence: None)
  Receive Date: 20090617
  Receipt Date: 20090609
  Transmission Date: 20091009
  Serious: Yes (Other)
  Sender: FDA-Public Use
  Company Number: US-ASTRAZENECA-2009UW09955

PATIENT
  Age: 70 Year
  Sex: Female
  Weight: 64.9 kg

DRUGS (12)
  1. CRESTOR [Suspect]
     Route: 048
     Dates: start: 20080101
  2. BYSTOLIC [Concomitant]
     Indication: HYPERTENSION
     Route: 048
  3. IMDUR [Concomitant]
     Indication: CARDIAC DISORDER
     Route: 048
  4. PLAVIX [Concomitant]
     Indication: CARDIAC DISORDER
     Route: 048
  5. PROTONIX [Concomitant]
     Indication: ABDOMINAL DISCOMFORT
     Route: 048
  6. ASPIRIN [Concomitant]
     Indication: CARDIAC DISORDER
     Route: 048
     Dates: start: 20080101
  7. VITAMINS [Concomitant]
     Route: 048
  8. CALCIUM [Concomitant]
  9. FISH OIL [Concomitant]
     Route: 048
  10. NITROGLYCERIN [Concomitant]
  11. LUTEIN [Concomitant]
     Route: 048
  12. VITAMIN-MINERAL COMPOUND TAB [Concomitant]
     Route: 048

REACTIONS (3)
  - BALANCE DISORDER [None]
  - DIZZINESS [None]
  - MUSCULAR WEAKNESS [None]
